FAERS Safety Report 24843354 (Version 1)
Quarter: 2025Q1

REPORT INFORMATION
  Report Type: Spontaneous
  Country: US (occurrence: US)
  Receive Date: 20250115
  Receipt Date: 20250115
  Transmission Date: 20250409
  Serious: No
  Sender: RECORDATI
  Company Number: US-RECORDATI RARE DISEASE INC.-2024007012

PATIENT

DRUGS (5)
  1. ISTURISA [Suspect]
     Active Substance: OSILODROSTAT PHOSPHATE
     Indication: Cushing^s syndrome
     Dosage: 1 MILLIGRAM, BID
     Route: 048
     Dates: start: 20240816, end: 20240821
  2. ISTURISA [Suspect]
     Active Substance: OSILODROSTAT PHOSPHATE
     Dosage: 1 MG, BID
     Route: 048
     Dates: start: 2024, end: 2024
  3. GINKGO [Concomitant]
     Active Substance: GINKGO
     Indication: Product used for unknown indication
     Dosage: 60 MG, QD (CAPSULE)
     Route: 048
     Dates: start: 20230801
  4. ADULT MULTIVITAMIN [Concomitant]
     Indication: Product used for unknown indication
     Dosage: 1 DOSAGE FORM (1 TABLET), QD
     Route: 048
     Dates: start: 20230801
  5. VITAMIN D3 [Concomitant]
     Active Substance: CHOLECALCIFEROL
     Indication: Product used for unknown indication
     Dosage: 50 MICROGRAM (2000), QD (TABLET)
     Route: 048
     Dates: start: 20230801

REACTIONS (3)
  - Feeling jittery [Recovered/Resolved]
  - Nervousness [Recovered/Resolved]
  - Bundle branch block left [Unknown]

NARRATIVE: CASE EVENT DATE: 20240821
